FAERS Safety Report 10702387 (Version 1)
Quarter: 2015Q1

REPORT INFORMATION
  Report Type: Spontaneous
  Country: US (occurrence: US)
  Receive Date: 20150109
  Receipt Date: 20150109
  Transmission Date: 20150721
  Serious: No
  Sender: FDA-Public Use
  Company Number: US-CELGENEUS-USA-2014105814

PATIENT
  Age: 76 Year
  Sex: Female

DRUGS (4)
  1. DONEPEZIL [Concomitant]
     Active Substance: DONEPEZIL
     Indication: AMNESIA
     Route: 048
     Dates: start: 20140823
  2. ATORVASTATIN [Concomitant]
     Active Substance: ATORVASTATIN
     Route: 048
     Dates: start: 20130420
  3. OTEZLA [Suspect]
     Active Substance: APREMILAST
     Indication: PSORIATIC ARTHROPATHY
     Dosage: 60 MILLIGRAM
     Route: 048
     Dates: start: 20140828
  4. TROSPIUM CHL [Concomitant]
     Route: 048
     Dates: start: 20140729

REACTIONS (1)
  - Drug ineffective [Not Recovered/Not Resolved]

NARRATIVE: CASE EVENT DATE: 20140828
